FAERS Safety Report 10387723 (Version 1)
Quarter: 2014Q3

REPORT INFORMATION
  Report Type: Spontaneous
  Country: GB (occurrence: GB)
  Receive Date: 20140815
  Receipt Date: 20140815
  Transmission Date: 20150326
  Serious: Yes (Death)
  Sender: FDA-Public Use
  Company Number: GB-B.I. PHARMACEUTICALS,INC./RIDGEFIELD-2014-BI-37096GD

PATIENT
  Age: 53 Year
  Sex: Male

DRUGS (2)
  1. AFATINIB [Suspect]
     Active Substance: AFATINIB
     Indication: LUNG ADENOCARCINOMA METASTATIC
     Route: 050
  2. AFATINIB [Suspect]
     Active Substance: AFATINIB
     Indication: METASTASES TO CENTRAL NERVOUS SYSTEM

REACTIONS (3)
  - Metastases to central nervous system [Fatal]
  - Cerebral ventricle dilatation [Fatal]
  - Pneumonia [Fatal]
